FAERS Safety Report 7690636-7 (Version None)
Quarter: 2011Q3

REPORT INFORMATION
  Report Type: 
  Country: None (occurrence: None)
  Receive Date: 20110818
  Receipt Date: 20110804
  Transmission Date: 20111222
  Serious: Yes (Death)
  Sender: FDA-Public Use
  Company Number: GB-ALEXION PHARMACEUTICALS INC.-A201100972

PATIENT
  Sex: Female

DRUGS (3)
  1. SOLIRIS [Suspect]
     Indication: MALIGNANT ATROPHIC PAPULOSIS
     Dosage: 900 MG QW
     Route: 042
     Dates: start: 20110101
  2. SOLIRIS [Suspect]
     Dosage: 1500 MG QW
     Route: 042
     Dates: start: 20110101
  3. SOLIRIS [Suspect]
     Dosage: 1200 MG Q2W
     Route: 042
     Dates: start: 20110301

REACTIONS (5)
  - INFECTIOUS PERITONITIS [None]
  - SKIN LESION [None]
  - GASTROINTESTINAL NECROSIS [None]
  - PLEURAL EFFUSION [None]
  - INTESTINAL PERFORATION [None]
